FAERS Safety Report 10102269 (Version 2)
Quarter: 2014Q2

REPORT INFORMATION
  Report Type: Other
  Country: US (occurrence: US)
  Receive Date: 20140424
  Receipt Date: 20140501
  Transmission Date: 20141212
  Serious: Yes (Other)
  Sender: FDA-Public Use
  Company Number: US-ACORDA-ACO_103000_2014

PATIENT
  Sex: Female
  Weight: 68.27 kg

DRUGS (7)
  1. AMPYRA [Suspect]
     Indication: GAIT DISTURBANCE
     Dosage: 10 MG, BID
     Route: 048
     Dates: start: 20140323, end: 20140415
  2. AMPYRA [Suspect]
     Indication: MULTIPLE SCLEROSIS
  3. OXYCONTIN [Suspect]
     Indication: FACIAL NEURALGIA
     Dosage: UNK
     Route: 048
     Dates: start: 20140314
  4. ANALGESICS [Suspect]
     Indication: FACIAL NEURALGIA
     Dosage: UNK
     Route: 048
     Dates: start: 20140314
  5. AUBAGIO [Concomitant]
     Indication: PRODUCT USED FOR UNKNOWN INDICATION
     Dosage: 7 MG
     Route: 065
  6. GABAPENTIN [Concomitant]
     Indication: PRODUCT USED FOR UNKNOWN INDICATION
     Dosage: 600 MG
  7. BACLOFEN [Concomitant]
     Indication: PRODUCT USED FOR UNKNOWN INDICATION
     Dosage: 10 MG

REACTIONS (4)
  - Movement disorder [Unknown]
  - Muscular weakness [Not Recovered/Not Resolved]
  - Drug interaction [Unknown]
  - Gait disturbance [Unknown]
